FAERS Safety Report 13785632 (Version 1)
Quarter: 2017Q3

REPORT INFORMATION
  Report Type: Spontaneous
  Country: US (occurrence: US)
  Receive Date: 20170724
  Receipt Date: 20170724
  Transmission Date: 20171127
  Serious: No
  Sender: FDA-Public Use
  Company Number: None

PATIENT
  Age: 23 Year
  Sex: Female
  Weight: 63 kg

DRUGS (6)
  1. SERTRALIENE [Concomitant]
  2. IRON [Concomitant]
     Active Substance: IRON
  3. STRATTERA [Suspect]
     Active Substance: ATOMOXETINE HYDROCHLORIDE
     Indication: ATTENTION DEFICIT/HYPERACTIVITY DISORDER
     Dosage: ?          QUANTITY:1 CAPSULE(S);?ORAL
     Route: 048
     Dates: start: 20160708, end: 20170710
  4. JUBILER BIRTH CONTROL [Concomitant]
  5. IBPROFUN [Concomitant]
  6. VITAMIN B12 [Concomitant]
     Active Substance: CYANOCOBALAMIN

REACTIONS (1)
  - Musculoskeletal chest pain [None]

NARRATIVE: CASE EVENT DATE: 20170301
